FAERS Safety Report 17430275 (Version 7)
Quarter: 2023Q2

REPORT INFORMATION
  Report Type: Spontaneous
  Country: US (occurrence: US)
  Receive Date: 20200218
  Receipt Date: 20230622
  Transmission Date: 20230721
  Serious: Yes (Other)
  Sender: FDA-Public Use
  Company Number: US-PFIZER INC-2020071406

PATIENT
  Age: 45 Year
  Sex: Female

DRUGS (6)
  1. XELJANZ XR [Suspect]
     Active Substance: TOFACITINIB CITRATE
     Indication: Rheumatoid arthritis
     Dosage: 11 MG, 1X/DAY
     Route: 048
     Dates: start: 20191030, end: 20200213
  2. XELJANZ XR [Suspect]
     Active Substance: TOFACITINIB CITRATE
     Dosage: 11 MG, 1X/DAY
     Route: 048
     Dates: end: 20200507
  3. XELJANZ XR [Suspect]
     Active Substance: TOFACITINIB CITRATE
     Dosage: 11 MG, 1X/DAY
     Route: 048
     Dates: end: 202006
  4. XELJANZ XR [Suspect]
     Active Substance: TOFACITINIB CITRATE
     Dosage: 11 MG, 1X/DAY
     Route: 048
     Dates: start: 202007
  5. XELJANZ XR [Suspect]
     Active Substance: TOFACITINIB CITRATE
     Dosage: 11 MG, ALTERNATE DAY
     Route: 048
  6. XELJANZ XR [Suspect]
     Active Substance: TOFACITINIB CITRATE
     Dosage: 11 MG, DAILY
     Route: 048
     Dates: start: 202210

REACTIONS (25)
  - Sinusitis [Unknown]
  - Neck pain [Unknown]
  - Herpes zoster [Recovered/Resolved]
  - Influenza [Unknown]
  - Pain [Unknown]
  - Oropharyngeal pain [Unknown]
  - Ear pain [Unknown]
  - Chest pain [Unknown]
  - Headache [Unknown]
  - Weight increased [Not Recovered/Not Resolved]
  - Dry skin [Unknown]
  - Rash [Unknown]
  - Condition aggravated [Unknown]
  - Arthralgia [Unknown]
  - Illness [Unknown]
  - Alopecia [Unknown]
  - Depressed mood [Unknown]
  - Discouragement [Unknown]
  - Neck pain [Unknown]
  - Infectious mononucleosis [Unknown]
  - COVID-19 [Unknown]
  - Blood cholesterol increased [Unknown]
  - Fatigue [Unknown]
  - Drug ineffective [Unknown]
  - Product use issue [Unknown]

NARRATIVE: CASE EVENT DATE: 20191101
